FAERS Safety Report 7388786-8 (Version None)
Quarter: 2011Q2

REPORT INFORMATION
  Report Type: 
  Country: None (occurrence: None)
  Receive Date: 20110401
  Receipt Date: 20110321
  Transmission Date: 20111010
  Serious: Yes (Death, Hospitalization, Disabling)
  Sender: FDA-Public Use
  Company Number: FR-CELGENEUS-056-C5013-11013010

PATIENT
  Sex: Female
  Weight: 66.3 kg

DRUGS (8)
  1. LENALIDOMIDE [Suspect]
     Dosage: 25 MILLIGRAM
     Route: 048
     Dates: start: 20110104, end: 20110112
  2. DEXAMETHASONE [Suspect]
     Dosage: 20 MILLIGRAM
     Route: 065
     Dates: start: 20110104, end: 20110112
  3. PREVISCAN [Concomitant]
     Indication: THROMBOSIS PROPHYLAXIS
  4. DEXAMETHASONE [Suspect]
     Indication: MULTIPLE MYELOMA
     Dosage: 20 MILLIGRAM
     Route: 065
     Dates: start: 20101207
  5. CIPRALAN [Concomitant]
     Indication: ATRIAL FIBRILLATION
     Route: 065
  6. PREVISCAN [Concomitant]
     Indication: ATRIAL FIBRILLATION
     Route: 048
     Dates: start: 20090101
  7. PREVISCAN [Concomitant]
     Indication: ARRHYTHMIA
  8. LENALIDOMIDE [Suspect]
     Indication: MULTIPLE MYELOMA
     Dosage: 25 MILLIGRAM
     Route: 048
     Dates: start: 20101207

REACTIONS (15)
  - PLATELET COUNT DECREASED [None]
  - NEOPLASM MALIGNANT [None]
  - MUTISM [None]
  - WHITE BLOOD CELL COUNT DECREASED [None]
  - DEVICE RELATED SEPSIS [None]
  - NEUTROPHIL COUNT DECREASED [None]
  - SEPTIC SHOCK [None]
  - DIABETES MELLITUS [None]
  - ANAEMIA [None]
  - SEPSIS [None]
  - EUPHORIC MOOD [None]
  - REPETITIVE SPEECH [None]
  - MULTIPLE MYELOMA [None]
  - STAPHYLOCOCCUS TEST POSITIVE [None]
  - ESCHERICHIA TEST POSITIVE [None]
